FAERS Safety Report 24335353 (Version 1)
Quarter: 2024Q3

REPORT INFORMATION
  Report Type: Report from Study
  Country: FR (occurrence: FR)
  Receive Date: 20240918
  Receipt Date: 20240918
  Transmission Date: 20241016
  Serious: No
  Sender: SANDOZ
  Company Number: FR-SANDOZ-SDZ2024FR031198

PATIENT
  Sex: Male

DRUGS (1)
  1. OMNITROPE [Suspect]
     Active Substance: SOMATROPIN
     Indication: Product used for unknown indication
     Dosage: 1.4 MG, QD
     Route: 058
     Dates: start: 2018

REACTIONS (2)
  - Incorrect dose administered by device [Unknown]
  - Device mechanical issue [Not Recovered/Not Resolved]
